FAERS Safety Report 19276007 (Version 1)
Quarter: 2021Q2

REPORT INFORMATION
  Report Type: Report from Study
  Country: CO (occurrence: CO)
  Receive Date: 20210519
  Receipt Date: 20210519
  Transmission Date: 20210717
  Serious: Yes (Other)
  Sender: FDA-Public Use
  Company Number: NVSC2021CO106607

PATIENT
  Sex: Male
  Weight: 78 kg

DRUGS (1)
  1. LOSARTAN. [Suspect]
     Active Substance: LOSARTAN
     Indication: HYPERTENSION
     Dosage: 50 MG, Q12H
     Route: 048

REACTIONS (3)
  - Off label use [Unknown]
  - Metastatic malignant melanoma [Unknown]
  - BRAF gene mutation [Unknown]

NARRATIVE: CASE EVENT DATE: 2018
